FAERS Safety Report 5056132-0 (Version None)
Quarter: 2006Q3

REPORT INFORMATION
  Report Type: 
  Country: None (occurrence: None)
  Receive Date: 20060720
  Receipt Date: 20060717
  Transmission Date: 20061208
  Serious: Yes (Other)
  Sender: FDA-Public Use
  Company Number: US-GLAXOSMITHKLINE-A0612658A

PATIENT
  Age: 95 Year
  Sex: Male

DRUGS (3)
  1. ADVAIR DISKUS 100/50 [Suspect]
     Indication: CHRONIC OBSTRUCTIVE PULMONARY DISEASE
     Dosage: 1PUFF TWICE PER DAY
     Route: 055
     Dates: start: 20050101, end: 20060717
  2. SPIRIVA [Concomitant]
  3. FUROSEMIDE [Concomitant]

REACTIONS (3)
  - CATARACT [None]
  - MACULAR OEDEMA [None]
  - VISUAL DISTURBANCE [None]
